FAERS Safety Report 8373540-0 (Version None)
Quarter: 2012Q2

REPORT INFORMATION
  Report Type: 
  Country: None (occurrence: None)
  Receive Date: 20120521
  Receipt Date: 20120511
  Transmission Date: 20120825
  Serious: Yes (Other)
  Sender: FDA-Public Use
  Company Number: US-US-EMD SERONO, INC.-7132424

PATIENT
  Sex: Female

DRUGS (2)
  1. THYROID MEDICATION [Concomitant]
     Indication: THYROIDECTOMY
  2. REBIF [Suspect]
     Indication: PRODUCT USED FOR UNKNOWN INDICATION
     Route: 058
     Dates: start: 20101029

REACTIONS (6)
  - INCONTINENCE [None]
  - THYROID DISORDER [None]
  - JOINT INJURY [None]
  - INJECTION SITE ERYTHEMA [None]
  - FATIGUE [None]
  - BIOPSY ENDOMETRIUM [None]
